FAERS Safety Report 10022108 (Version 3)
Quarter: 2014Q1

REPORT INFORMATION
  Report Type: Spontaneous
  Country: AT (occurrence: None)
  Receive Date: 20131211
  Receipt Date: 20140107
  Transmission Date: 20141002
  Serious: Yes (Death, Hospitalization)
  Sender: FDA-Public Use
  Company Number: GAM-291-13-AT

PATIENT
  Age: 60 Year
  Sex: Female

DRUGS (6)
  1. OCTAGAM [Suspect]
     Indication: MULTIPLE SCLEROSIS
     Dosage: 7.5 G (1X 4 WEEKS), 80 MIN INTRAVENOUS (NOT OTHERWISE SPECIFIED)?
     Route: 042
     Dates: start: 20130731, end: 20130731
  2. ALENDRONATE SODIUM [Concomitant]
  3. VITAMIN B COMPLEX [Concomitant]
  4. XIPAMIDE [Concomitant]
  5. GINKGO BILOBA [Concomitant]
  6. DULOXETINE [Concomitant]

REACTIONS (18)
  - Embolism [None]
  - Aortic thrombosis [None]
  - Vertigo [None]
  - Pain in extremity [None]
  - Monoparesis [None]
  - Dyspnoea [None]
  - Tachycardia [None]
  - General physical health deterioration [None]
  - Cardiogenic shock [None]
  - Cardiac death [None]
  - Peripheral artery thrombosis [None]
  - Peripheral artery thrombosis [None]
  - Intracardiac thrombus [None]
  - Arteriosclerosis [None]
  - Renal infarct [None]
  - Arteriosclerosis coronary artery [None]
  - Ventricular failure [None]
  - Pulmonary oedema [None]
